FAERS Safety Report 8356395 (Version 8)
Quarter: 2013Q4

REPORT INFORMATION
  Report Type: Report from Study
  Country: JP (occurrence: JP)
  Receive Date: 20120126
  Receipt Date: 20131021
  Transmission Date: 20140711
  Serious: Yes (Hospitalization)
  Sender: FDA-Public Use
  Company Number: JP-JNJFOC-20120104858

PATIENT
  Age: 40 Year
  Sex: Male
  Weight: 57.2 kg

DRUGS (16)
  1. STELARA [Suspect]
     Indication: PSORIATIC ARTHROPATHY
     Route: 058
     Dates: start: 20130108, end: 20130108
  2. STELARA [Suspect]
     Indication: PSORIATIC ARTHROPATHY
     Route: 058
     Dates: start: 20130402
  3. STELARA [Suspect]
     Indication: PSORIATIC ARTHROPATHY
     Route: 058
     Dates: start: 20121016, end: 20121016
  4. STELARA [Suspect]
     Indication: PSORIATIC ARTHROPATHY
     Route: 058
     Dates: start: 20120724, end: 20120724
  5. STELARA [Suspect]
     Indication: PSORIATIC ARTHROPATHY
     Route: 058
     Dates: start: 20120501, end: 20120501
  6. STELARA [Suspect]
     Indication: PSORIATIC ARTHROPATHY
     Route: 058
     Dates: start: 20120207, end: 20120207
  7. STELARA [Suspect]
     Indication: PSORIATIC ARTHROPATHY
     Route: 058
     Dates: start: 20111227, end: 20111227
  8. DICLOFENAC SODIUM [Concomitant]
     Indication: PAIN
     Dates: start: 20101130
  9. LANSOPRAZOLE [Concomitant]
     Dates: start: 20110215
  10. MAXACALCITOL [Concomitant]
     Route: 061
  11. DIFLUCORTOLONE VALERATE [Concomitant]
     Indication: PSORIATIC ARTHROPATHY
     Route: 061
     Dates: start: 20110215
  12. ALLEGRA [Concomitant]
     Route: 048
     Dates: start: 20101111
  13. LAC B [Concomitant]
     Indication: PSORIATIC ARTHROPATHY
     Route: 048
     Dates: start: 20111004
  14. TRAMCET [Concomitant]
     Route: 048
  15. TALION [Concomitant]
     Route: 048
  16. CINAL [Concomitant]
     Route: 048

REACTIONS (1)
  - Cholecystitis [Recovered/Resolved]
